FAERS Safety Report 11422016 (Version 1)
Quarter: 2015Q3

REPORT INFORMATION
  Report Type: Spontaneous
  Country: US (occurrence: None)
  Receive Date: 20150826
  Receipt Date: 20150826
  Transmission Date: 20151125
  Serious: Yes (Death, Hospitalization)
  Sender: FDA-Public Use
  Company Number: None

PATIENT
  Age: 59 Year
  Sex: Female
  Weight: 75 kg

DRUGS (6)
  1. FLUDARABINE PHOSPHATE. [Suspect]
     Active Substance: FLUDARABINE PHOSPHATE
     Dates: end: 20150306
  2. RITUXIMAB (MOAB C2B8 ANTI CD20, CHIMERIC) [Suspect]
     Active Substance: RITUXIMAB
     Dates: end: 20150306
  3. CYCLOPHOSPHAMIDE. [Suspect]
     Active Substance: CYCLOPHOSPHAMIDE
     Dates: end: 20150306
  4. CHOLECALCIFIED VIT C [Concomitant]
  5. BIOTIN [Concomitant]
     Active Substance: BIOTIN
  6. COQ10 [Concomitant]
     Active Substance: UBIDECARENONE

REACTIONS (14)
  - Pyrexia [None]
  - Blood bilirubin increased [None]
  - Hypotension [None]
  - Tachycardia [None]
  - Septic shock [None]
  - Fall [None]
  - Pancytopenia [None]
  - Petechiae [None]
  - Blood lactic acid increased [None]
  - Abdominal distension [None]
  - Breath sounds abnormal [None]
  - Somnolence [None]
  - Blood creatinine increased [None]
  - Acidosis [None]

NARRATIVE: CASE EVENT DATE: 20150415
